FAERS Safety Report 4568188-X (Version None)
Quarter: 2005Q1

REPORT INFORMATION
  Report Type: 
  Country: None (occurrence: None)
  Receive Date: 20050131
  Receipt Date: 20040722
  Transmission Date: 20050727
  Serious: Yes (Hospitalization)
  Sender: FDA-Public Use
  Company Number: MSTR-NO-0112C-0513

PATIENT
  Age: 78 Year
  Sex: Female
  Weight: 54 kg

DRUGS (4)
  1. METASTRON [Suspect]
     Indication: METASTATIC PAIN
     Dosage: 2.0 MBQ/KG, SINGLE DOSE; I.V.
     Route: 042
     Dates: start: 20011024, end: 20011024
  2. DICLOFENAC SODIUM [Concomitant]
  3. MEDROXYPROGESTERONE ACETATE [Concomitant]
  4. FAMOTIDINE [Concomitant]

REACTIONS (16)
  - ALANINE AMINOTRANSFERASE INCREASED [None]
  - ARTHRALGIA [None]
  - ASPARTATE AMINOTRANSFERASE INCREASED [None]
  - ASTHENIA [None]
  - BLOOD ALKALINE PHOSPHATASE INCREASED [None]
  - CEREBRAL INFARCTION [None]
  - CSF PROTEIN INCREASED [None]
  - DEMENTIA [None]
  - DIFFICULTY IN WALKING [None]
  - DISORIENTATION [None]
  - ELECTROENCEPHALOGRAM ABNORMAL [None]
  - MEMORY IMPAIRMENT [None]
  - MOBILITY DECREASED [None]
  - MUSCULAR WEAKNESS [None]
  - NERVOUS SYSTEM DISORDER [None]
  - PYREXIA [None]
